FAERS Safety Report 8230571-9 (Version None)
Quarter: 2012Q1

REPORT INFORMATION
  Report Type: 
  Country: None (occurrence: None)
  Receive Date: 20120323
  Receipt Date: 20120313
  Transmission Date: 20120608
  Serious: Yes (Hospitalization)
  Sender: FDA-Public Use
  Company Number: FR-JNJFOC-20120310772

PATIENT
  Sex: Female

DRUGS (8)
  1. ASPIRIN [Concomitant]
     Route: 065
  2. DIPROSONE [Concomitant]
     Route: 065
  3. INDAPAMIDE [Concomitant]
     Route: 065
  4. ACETAMINOPHEN AND TRAMADOL HCL [Suspect]
     Indication: BACK PAIN
     Route: 048
     Dates: start: 20111010, end: 20111014
  5. FENOFIBRATE [Concomitant]
     Route: 065
  6. KETOCONAZOLE [Concomitant]
     Route: 065
  7. ACETAMINOPHEN W/ PROPOXYPHENE HCL [Concomitant]
     Route: 065
  8. RILMENIDINE [Concomitant]
     Route: 065

REACTIONS (1)
  - ACUTE GENERALISED EXANTHEMATOUS PUSTULOSIS [None]
